FAERS Safety Report 7241074-2 (Version None)
Quarter: 2011Q1

REPORT INFORMATION
  Report Type: 
  Country: None (occurrence: None)
  Receive Date: 20110120
  Receipt Date: 20110120
  Transmission Date: 20110831
  Serious: Yes (Death)
  Sender: FDA-Public Use
  Company Number: None

PATIENT
  Sex: Female
  Weight: 64.4108 kg

DRUGS (1)
  1. VENOFER [Suspect]
     Indication: COLONOSCOPY
     Dates: start: 20100119

REACTIONS (5)
  - MUSCLE SPASMS [None]
  - HYPOTENSION [None]
  - UNRESPONSIVE TO STIMULI [None]
  - SPEECH DISORDER [None]
  - FLATULENCE [None]
